FAERS Safety Report 7988753 (Version 2)
Quarter: 2012Q4

REPORT INFORMATION
  Report Type: 
  Country: CA (occurrence: CA)
  Receive Date: 20110613
  Receipt Date: 20121104
  Transmission Date: 20130627
  Serious: Yes (Other)
  Sender: FDA-Public Use
  Company Number: PHMT2006CA02248

PATIENT
  Age: 66 Year
  Sex: Male

DRUGS (2)
  1. ZOMETA [Suspect]
     Indication: PROSTATE CANCER
     Dosage: 4 mg, UNK
     Dates: start: 20061024, end: 20061024
  2. MORPHINE [Concomitant]

REACTIONS (2)
  - Cerebrovascular accident [Unknown]
  - Blood calcium decreased [Unknown]
